FAERS Safety Report 8824743 (Version 2)
Quarter: 2012Q4

REPORT INFORMATION
  Report Type: 
  Country: JP (occurrence: JP)
  Receive Date: 20121004
  Receipt Date: 20121017
  Transmission Date: 20130627
  Serious: Yes (Other)
  Sender: FDA-Public Use
  Company Number: JP-PFIZER INC-2012244368

PATIENT
  Age: 68 Year
  Sex: Female

DRUGS (1)
  1. NORVASC [Suspect]
     Dosage: 5 mg/day
     Route: 048

REACTIONS (2)
  - Aspiration [Recovered/Resolved]
  - Pharyngeal hypoaesthesia [Recovered/Resolved]
